FAERS Safety Report 4728850-2 (Version None)
Quarter: 2005Q3

REPORT INFORMATION
  Report Type: 
  Country: None (occurrence: None)
  Receive Date: 20050729
  Receipt Date: 20050722
  Transmission Date: 20060218
  Serious: Yes (Hospitalization)
  Sender: FDA-Public Use
  Company Number: JP-ROCHE-411544

PATIENT
  Age: 66 Year
  Sex: Female

DRUGS (4)
  1. PANALDINE [Suspect]
     Indication: ACUTE MYOCARDIAL INFARCTION
     Dosage: OTHER INDICATIONS: THROMBOSIS PROPHYLAXIS AND STENT PLACEMENT.
     Route: 048
     Dates: start: 20050508, end: 20050620
  2. BUFFERIN [Concomitant]
     Indication: DRUG USE FOR UNKNOWN INDICATION
     Route: 048
  3. SIGMART [Concomitant]
     Indication: DRUG USE FOR UNKNOWN INDICATION
     Route: 065
  4. LASIX [Concomitant]
     Indication: DRUG USE FOR UNKNOWN INDICATION
     Route: 065

REACTIONS (5)
  - ALANINE AMINOTRANSFERASE INCREASED [None]
  - ASPARTATE AMINOTRANSFERASE INCREASED [None]
  - DECREASED APPETITE [None]
  - HEPATIC FUNCTION ABNORMAL [None]
  - MALAISE [None]
